FAERS Safety Report 14276654 (Version 1)
Quarter: 2017Q4

REPORT INFORMATION
  Report Type: Spontaneous
  Country: IT (occurrence: IT)
  Receive Date: 20171211
  Receipt Date: 20171211
  Transmission Date: 20180321
  Serious: Yes (Other)
  Sender: FDA-Public Use
  Company Number: IT-OTSUKA-2017_013536

PATIENT
  Age: 15 Year
  Sex: Male
  Weight: 69 kg

DRUGS (2)
  1. ABILIFY [Suspect]
     Active Substance: ARIPIPRAZOLE
     Indication: PRODUCT USED FOR UNKNOWN INDICATION
     Dosage: 5 MG, QD (FORMULATION: SYRUP)
     Route: 048
     Dates: start: 20170423
  2. ABILIFY [Suspect]
     Active Substance: ARIPIPRAZOLE
     Indication: BIPOLAR DISORDER
     Dosage: 7.5 MG, QD (FORMULATION: SYRUP)
     Route: 048

REACTIONS (6)
  - Tremor [Unknown]
  - Prescribed underdose [Unknown]
  - Medication error [Unknown]
  - Vomiting [Unknown]
  - Intentional self-injury [Recovering/Resolving]
  - Somnolence [Unknown]

NARRATIVE: CASE EVENT DATE: 20170502
